FAERS Safety Report 4866048-8 (Version None)
Quarter: 2005Q4

REPORT INFORMATION
  Report Type: 
  Country: None (occurrence: None)
  Receive Date: 20051221
  Receipt Date: 20051215
  Transmission Date: 20060501
  Serious: Yes (Hospitalization)
  Sender: FDA-Public Use
  Company Number: SU-2005-004339

PATIENT
  Sex: Female
  Weight: 92.0802 kg

DRUGS (8)
  1. BENICAR [Suspect]
     Indication: CHRONIC FATIGUE SYNDROME
     Dosage: 80 MG QD PO
     Route: 048
  2. BENICAR [Suspect]
     Indication: FIBROMYALGIA
     Dosage: 80 MG QD PO
     Route: 048
  3. BENICAR [Suspect]
     Indication: HEADACHE
     Dosage: 80 MG QD PO
     Route: 048
  4. MORPHINE ER [Concomitant]
  5. FLUOXETINE [Concomitant]
  6. RANITIDINE [Concomitant]
  7. NEURONTIN [Concomitant]
  8. LEVOXYL [Concomitant]

REACTIONS (3)
  - COGNITIVE DISORDER [None]
  - LOSS OF CONSCIOUSNESS [None]
  - SOMNOLENCE [None]
